FAERS Safety Report 10008073 (Version 12)
Quarter: 2014Q3

REPORT INFORMATION
  Report Type: Report from Study
  Country: JP (occurrence: JP)
  Receive Date: 20140313
  Receipt Date: 20140725
  Transmission Date: 20150326
  Serious: Yes (Life-Threatening, Hospitalization, Other)
  Sender: FDA-Public Use
  Company Number: JP-PFIZER INC-2014072572

PATIENT
  Age: 78 Year
  Sex: Male
  Weight: 72 kg

DRUGS (19)
  1. MDV3100 [Concomitant]
     Active Substance: ENZALUTAMIDE
     Dosage: UNK
     Route: 048
     Dates: start: 201302, end: 201403
  2. MDV3100 [Concomitant]
     Active Substance: ENZALUTAMIDE
     Dosage: UNK
     Route: 048
     Dates: start: 20130116
  3. ALINAMIN F [Concomitant]
     Active Substance: FURSULTIAMINE HYDROCHLORIDE
     Indication: VITAMIN SUPPLEMENTATION
     Dosage: 3 DF, DAILY
     Route: 048
     Dates: start: 20091219, end: 20140301
  4. CALCIUM L-ASPARTATE [Concomitant]
     Indication: MINERAL SUPPLEMENTATION
     Dosage: 600 MG, DAILY
     Route: 048
     Dates: start: 20120820, end: 20140301
  5. ZOLADEX [Concomitant]
     Active Substance: GOSERELIN ACETATE
     Dosage: UNK
     Dates: start: 20091013
  6. CELECOX [Suspect]
     Active Substance: CELECOXIB
     Indication: CANCER PAIN
     Dosage: 100 MG, AS NEEDED
     Route: 048
     Dates: start: 20130723, end: 20140301
  7. NEUROVITAN [Suspect]
     Active Substance: VITAMINS
     Indication: VITAMIN SUPPLEMENTATION
     Dosage: 1 DF, 3X/DAY
     Route: 048
     Dates: start: 20091219, end: 20140301
  8. MDV3100 [Concomitant]
     Active Substance: ENZALUTAMIDE
     Indication: PROSTATE CANCER METASTATIC
     Dosage: 40 MG, UNK
     Route: 048
     Dates: start: 20111115, end: 20121207
  9. CALCIUM L-ASPARTATE [Concomitant]
     Indication: PROPHYLAXIS
  10. SEISHOKU [Concomitant]
     Active Substance: SODIUM CHLORIDE
     Indication: MEDICATION DILUTION
     Dosage: 100 ML, MONTHLY
     Route: 042
     Dates: start: 20110315, end: 20140204
  11. CINAL [Concomitant]
     Active Substance: ASCORBIC ACID\CALCIUM PANTOTHENATE
     Indication: VITAMIN SUPPLEMENTATION
     Dosage: 1 DF, 3X/DAY
     Route: 048
     Dates: start: 20110916, end: 20140301
  12. URIEF [Suspect]
     Active Substance: SILODOSIN
     Indication: DYSURIA
     Dosage: 4 MG, 2X/DAY
     Route: 048
     Dates: start: 20090420, end: 20140301
  13. PERSANTIN [Suspect]
     Active Substance: DIPYRIDAMOLE
     Indication: PROPHYLAXIS
     Dosage: 25 MG, 1X/DAY
     Route: 048
     Dates: start: 20130723, end: 20140301
  14. LIVALO [Suspect]
     Active Substance: PITAVASTATIN CALCIUM
     Indication: PROPHYLAXIS
     Dosage: 2 MG, 1X/DAY
     Route: 048
     Dates: start: 20120820, end: 20140301
  15. ZOMETA [Concomitant]
     Active Substance: ZOLEDRONIC ACID
     Indication: METASTASES TO BONE
     Dosage: 4 MG, MONTHLY
     Route: 042
     Dates: start: 20110315, end: 20140204
  16. URSO [Concomitant]
     Active Substance: URSODIOL
     Indication: HEPATIC FUNCTION ABNORMAL
     Dosage: 300 MG, DAILY
     Route: 048
     Dates: start: 20110916, end: 20140301
  17. CONTOL [Suspect]
     Active Substance: CHLORDIAZEPOXIDE
     Indication: INSOMNIA
     Dosage: 10 MG, AS NEEDED
     Route: 048
     Dates: start: 20110916, end: 20140301
  18. GLYCERIN. [Concomitant]
     Active Substance: GLYCERIN
     Indication: INFECTION PROPHYLAXIS
     Dosage: PRN
     Route: 003
     Dates: start: 20090323, end: 20140301
  19. L-CARTIN [Concomitant]
     Active Substance: LEVOCARNITINE HYDROCHLORIDE
     Indication: MUSCULAR WEAKNESS
     Dosage: 900 MG, DAILY
     Route: 048
     Dates: start: 20120404, end: 20140301

REACTIONS (2)
  - Hypoxic-ischaemic encephalopathy [Unknown]
  - Loss of consciousness [Recovered/Resolved with Sequelae]

NARRATIVE: CASE EVENT DATE: 20130723
